FAERS Safety Report 7146759-4 (Version None)
Quarter: 2010Q4

REPORT INFORMATION
  Report Type: 
  Country: None (occurrence: None)
  Receive Date: 20101208
  Receipt Date: 20101109
  Transmission Date: 20110411
  Serious: Yes (Hospitalization, Disabling)
  Sender: FDA-Public Use
  Company Number: JP-AMGEN-JPNSP2010005249

PATIENT

DRUGS (7)
  1. ENBREL [Suspect]
     Indication: RHEUMATOID ARTHRITIS
     Dosage: 25 MG, WEEKLY
     Route: 058
     Dates: start: 20101008, end: 20101023
  2. PREDONINE [Concomitant]
     Dosage: 5 MG, 1X/DAY
  3. RABEPRAZOLE SODIUM [Concomitant]
     Dosage: 10 MG, 1X/DAY
  4. ALFACALCIDOL [Concomitant]
     Dosage: 0.5 UG, ALTERNATE DAY
  5. SIMVASTATIN [Concomitant]
     Dosage: 5 MG, 1X/DAY
  6. TEPRENONE [Concomitant]
     Dosage: 50 MG, 1X/DAY
  7. ALENDRONATE SODIUM [Concomitant]
     Dosage: 35 MG, 1X/DAY

REACTIONS (3)
  - ALANINE AMINOTRANSFERASE INCREASED [None]
  - ASPARTATE AMINOTRANSFERASE INCREASED [None]
  - VIITH NERVE PARALYSIS [None]
